FAERS Safety Report 20044283 (Version 3)
Quarter: 2022Q1

REPORT INFORMATION
  Report Type: Spontaneous
  Country: US (occurrence: US)
  Receive Date: 20211108
  Receipt Date: 20220102
  Transmission Date: 20220424
  Serious: No
  Sender: FDA-Public Use
  Company Number: US-BEH-2021137537

PATIENT
  Sex: Female
  Weight: 49.887 kg

DRUGS (6)
  1. HIZENTRA [Suspect]
     Active Substance: HUMAN IMMUNOGLOBULIN G
     Indication: Dermatomyositis
     Dosage: 10 GRAM, QW
     Route: 058
     Dates: start: 202010
  2. HIZENTRA [Suspect]
     Active Substance: HUMAN IMMUNOGLOBULIN G
     Indication: Muscular weakness
     Dosage: 8 GRAM, QW
     Route: 058
     Dates: start: 202010
  3. HIZENTRA [Suspect]
     Active Substance: HUMAN IMMUNOGLOBULIN G
     Indication: Dermatomyositis
     Dosage: 10 GRAM, QW
     Route: 058
     Dates: start: 202108
  4. HIZENTRA [Suspect]
     Active Substance: HUMAN IMMUNOGLOBULIN G
     Dosage: 8 GRAM, QW
     Route: 058
     Dates: start: 202108
  5. HIZENTRA [Suspect]
     Active Substance: HUMAN IMMUNOGLOBULIN G
     Dosage: 10 GRAM, QW
     Route: 058
     Dates: start: 20210622
  6. HIZENTRA [Suspect]
     Active Substance: HUMAN IMMUNOGLOBULIN G
     Dosage: 8 GRAM, QW
     Route: 058
     Dates: start: 20210622

REACTIONS (8)
  - Dyspnoea [Unknown]
  - Muscle tightness [Unknown]
  - Headache [Unknown]
  - No adverse event [Unknown]
  - Off label use [Unknown]
  - Ill-defined disorder [Unknown]
  - Dyspnoea [Unknown]
  - Headache [Unknown]
